FAERS Safety Report 6418573-6 (Version None)
Quarter: 2009Q4

REPORT INFORMATION
  Report Type: 
  Country: None (occurrence: None)
  Receive Date: 20091026
  Receipt Date: 20091013
  Transmission Date: 20100525
  Serious: Yes (Other)
  Sender: FDA-Public Use
  Company Number: ADR37082009

PATIENT
  Age: 69 Year
  Sex: Female

DRUGS (7)
  1. SIMVASTATIN [Suspect]
     Indication: BLOOD CHOLESTEROL INCREASED
     Dosage: 40 MG ORAL
     Route: 048
     Dates: start: 20070829, end: 20071001
  2. SIMVASTATIN [Suspect]
     Indication: DIABETES MELLITUS
     Dosage: 40 MG ORAL
     Route: 048
     Dates: start: 20070829, end: 20071001
  3. GLICLAZIDE [Concomitant]
  4. LEVOTHYROXINE SODIUM [Concomitant]
  5. METFORMIN HCL [Concomitant]
  6. NIFEDIPINE [Concomitant]
  7. PAROXETINE [Concomitant]

REACTIONS (1)
  - HEPATITIS [None]
